FAERS Safety Report 12484881 (Version 2)
Quarter: 2016Q3

REPORT INFORMATION
  Report Type: Spontaneous
  Country: US (occurrence: US)
  Receive Date: 20160621
  Receipt Date: 20160706
  Transmission Date: 20161109
  Serious: Yes (Other)
  Sender: FDA-Public Use
  Company Number: US-LPDUSPRD-20160499

PATIENT
  Age: 49 Year
  Sex: Female
  Weight: 98.2 kg

DRUGS (9)
  1. ASPIRIN. [Concomitant]
     Active Substance: ASPIRIN
     Dosage: 325 MG DAILY
     Route: 065
  2. FLUTICASONE [Concomitant]
     Active Substance: FLUTICASONE\FLUTICASONE PROPIONATE
     Dosage: 110 MCG/ACT 2 PUFFS BID
     Route: 065
  3. INJECTAFER [Suspect]
     Active Substance: FERRIC CARBOXYMALTOSE
     Dosage: 750 MG WEEKLY X2
     Route: 040
     Dates: start: 20160226, end: 20160304
  4. BUPROPION SR [Concomitant]
     Active Substance: BUPROPION
     Dosage: 150 MG TWICE DAILY
     Route: 065
  5. IBUPROPHEN [Concomitant]
     Active Substance: IBUPROFEN
     Dosage: 800 MG TID PRN
     Route: 065
  6. NABUMETONE. [Concomitant]
     Active Substance: NABUMETONE
     Dosage: 1000 MG DAILY
     Route: 065
  7. LISINOPRIL. [Concomitant]
     Active Substance: LISINOPRIL
     Dosage: 10 MG DAILY
     Route: 065
  8. OMEPRAZOLE. [Concomitant]
     Active Substance: OMEPRAZOLE
     Dosage: 20 MG DAILY
     Route: 065
  9. NO DRUG NAME [Concomitant]

REACTIONS (1)
  - Blood phosphorus decreased [Unknown]

NARRATIVE: CASE EVENT DATE: 20160304
